FAERS Safety Report 15458025 (Version 1)
Quarter: 2018Q4

REPORT INFORMATION
  Report Type: Spontaneous
  Country: US (occurrence: US)
  Receive Date: 20181003
  Receipt Date: 20181003
  Transmission Date: 20190204
  Serious: No
  Sender: FDA-Public Use
  Company Number: US-TEVA-2018-US-958871

PATIENT
  Sex: Female

DRUGS (1)
  1. PERMETHRIN. [Suspect]
     Active Substance: PERMETHRIN
     Route: 065
     Dates: start: 20180918

REACTIONS (3)
  - Product container seal issue [Unknown]
  - Product physical issue [Unknown]
  - Pruritus [Unknown]

NARRATIVE: CASE EVENT DATE: 20180923
